FAERS Safety Report 4969226-2 (Version None)
Quarter: 2006Q2

REPORT INFORMATION
  Report Type: 
  Country: None (occurrence: None)
  Receive Date: 20060405
  Receipt Date: 20060322
  Transmission Date: 20061013
  Serious: Yes (Other)
  Sender: FDA-Public Use
  Company Number: 2006041089

PATIENT
  Sex: Female
  Weight: 46.2669 kg

DRUGS (4)
  1. DETROL LA [Suspect]
     Indication: HYPERTONIC BLADDER
     Dosage: 4 MG (4 MG, 1 IN 1 D), ORAL
     Route: 048
  2. DARIFENACIN (DARIFENACIN) [Suspect]
     Indication: HYPERTONIC BLADDER
  3. EVISTA [Concomitant]
  4. SYNTHROID [Concomitant]

REACTIONS (4)
  - DRUG INEFFECTIVE [None]
  - DRUG INTOLERANCE [None]
  - EYE DISORDER [None]
  - PARKINSON'S DISEASE [None]
